FAERS Safety Report 14524388 (Version 5)
Quarter: 2019Q4

REPORT INFORMATION
  Report Type: Spontaneous
  Country: US (occurrence: US)
  Receive Date: 20180213
  Receipt Date: 20191002
  Transmission Date: 20200122
  Serious: No
  Sender: FDA-Public Use
  Company Number: US-PFIZER INC-2015436714

PATIENT
  Age: 61 Year
  Sex: Male

DRUGS (5)
  1. LYRICA [Suspect]
     Active Substance: PREGABALIN
     Indication: FIBROMYALGIA
     Dosage: 75 MG, DAILY
     Route: 048
  2. LYRICA [Suspect]
     Active Substance: PREGABALIN
     Dosage: 200 MG, 1X/DAY (IN THE EVENING WITH DROWSINESS PRECAUTIONS)
     Route: 048
  3. LYRICA [Suspect]
     Active Substance: PREGABALIN
     Dosage: 50 MG, 1X/DAY EVERY EVENING WITH THE 200MG CAPSULE FOR A TOTAL OF 250MG IN THE EVENING
     Route: 048
  4. LYRICA [Suspect]
     Active Substance: PREGABALIN
     Dosage: 150 MG, 1X/DAY (IN THE EVENING WITH DROWSINESS PRECAUTIONS)
     Route: 048
  5. LYRICA [Suspect]
     Active Substance: PREGABALIN
     Dosage: 200 MG, 2X/DAY (WITH DROWSINESS PRECAUTIONS)
     Route: 048
     Dates: start: 20180727

REACTIONS (5)
  - Withdrawal syndrome [Unknown]
  - Intentional product use issue [Unknown]
  - Malaise [Unknown]
  - Product dose omission [Unknown]
  - Influenza [Unknown]
